FAERS Safety Report 8221804-3 (Version None)
Quarter: 2012Q1

REPORT INFORMATION
  Report Type: 
  Country: None (occurrence: None)
  Receive Date: 20120320
  Receipt Date: 20120309
  Transmission Date: 20120608
  Serious: Yes (Hospitalization)
  Sender: FDA-Public Use
  Company Number: IT-PFIZER INC-2011213632

PATIENT
  Age: 89 Year
  Sex: Female

DRUGS (9)
  1. LASIX [Suspect]
     Indication: CARDIAC FAILURE
     Dosage: 125 MG, DAILY
     Route: 048
     Dates: start: 20110706, end: 20110806
  2. RAMIPRIL [Suspect]
     Indication: HYPERTENSION
     Dosage: 2.5 MG, DAILY
     Route: 048
     Dates: start: 20110520, end: 20110806
  3. BISOPROLOL FUMARATE [Suspect]
     Indication: CARDIAC FAILURE CHRONIC
     Dosage: 1.25 MG, DAILY
     Route: 048
     Dates: start: 20110706, end: 20110806
  4. ENOXAPARIN SODIUM [Suspect]
     Indication: THROMBOSIS PROPHYLAXIS
     Dosage: 4000 IU, DAILY
     Route: 058
     Dates: start: 20110728, end: 20110806
  5. ALLOPURINOL [Suspect]
     Indication: GOUT
     Dosage: 300 MG, DAILY
     Route: 048
     Dates: start: 20110706, end: 20110806
  6. LUVION [Suspect]
     Indication: HYPERALDOSTERONISM
     Dosage: 50 MG, DAILY
     Route: 048
     Dates: start: 20110706, end: 20110806
  7. RAMIPRIL [Suspect]
     Dosage: 5 MG, 1X/DAY
     Route: 048
     Dates: start: 20110520, end: 20110806
  8. LASIX [Suspect]
     Dosage: 25 MG, DAILY
     Route: 048
     Dates: start: 20110706, end: 20110806
  9. LEVOFLOXACIN [Suspect]
     Indication: RESPIRATORY TRACT INFECTION
     Dosage: 250 MG, DAILY
     Route: 048
     Dates: start: 20110706, end: 20110806

REACTIONS (3)
  - ERYTHEMA [None]
  - PRURITUS [None]
  - DRUG HYPERSENSITIVITY [None]
